FAERS Safety Report 4412458-2 (Version None)
Quarter: 2004Q2

REPORT INFORMATION
  Report Type: 
  Country: None (occurrence: None)
  Receive Date: 20040630
  Receipt Date: 20040329
  Transmission Date: 20050107
  Serious: No
  Sender: FDA-Public Use
  Company Number: 04P-163-0255077-00

PATIENT
  Age: 66 Year
  Sex: Male
  Weight: 99.7913 kg

DRUGS (13)
  1. HUMIRA [Suspect]
     Indication: RHEUMATOID ARTHRITIS
     Dosage: 40 MG, 1 IN 2 WK, SUBCUTANEOUS
     Route: 058
     Dates: start: 20040322
  2. CARVEDILOL [Concomitant]
  3. TELMISARTAN [Concomitant]
  4. DIGOXIN [Concomitant]
  5. KLONADIN [Concomitant]
  6. SIMVASTATIN [Concomitant]
  7. HYDROXYZINE [Concomitant]
  8. OMEPRAZOLE [Concomitant]
  9. TORSEMIDE [Concomitant]
  10. LEXAPRO [Concomitant]
  11. ALPRAZOLAM [Concomitant]
  12. PROPOXY-N-APAP [Concomitant]
  13. HISTAREX [Concomitant]

REACTIONS (3)
  - OEDEMA PERIPHERAL [None]
  - PAIN IN EXTREMITY [None]
  - RHEUMATOID ARTHRITIS [None]
